FAERS Safety Report 8377112-3 (Version None)
Quarter: 2012Q1

REPORT INFORMATION
  Report Type: 
  Country: None (occurrence: None)
  Receive Date: 20120323
  Receipt Date: 20110324
  Transmission Date: 20120608
  Serious: Yes (Hospitalization)
  Sender: FDA-Public Use
  Company Number: 163-21880-11032978

PATIENT
  Age: 69 Year
  Sex: Female

DRUGS (3)
  1. REVLIMID [Suspect]
     Indication: MULTIPLE MYELOMA
     Dosage: 25 MG, DAILY X 2 DAYS, PO,5 MG, DAILY X 21 DAYS, PO, 25 MG, DAILY X 21, PO
     Route: 048
     Dates: start: 20110325
  2. REVLIMID [Suspect]
     Indication: MULTIPLE MYELOMA
     Dosage: 25 MG, DAILY X 2 DAYS, PO,5 MG, DAILY X 21 DAYS, PO, 25 MG, DAILY X 21, PO
     Route: 048
     Dates: start: 20090801
  3. REVLIMID [Suspect]
     Indication: MULTIPLE MYELOMA
     Dosage: 25 MG, DAILY X 2 DAYS, PO,5 MG, DAILY X 21 DAYS, PO, 25 MG, DAILY X 21, PO
     Route: 048
     Dates: start: 20101201, end: 20110308

REACTIONS (2)
  - RENAL FAILURE [None]
  - DEHYDRATION [None]
